FAERS Safety Report 4947813-5 (Version None)
Quarter: 2006Q1

REPORT INFORMATION
  Report Type: 
  Country: None (occurrence: None)
  Receive Date: 20060320
  Receipt Date: 20060310
  Transmission Date: 20060701
  Serious: Yes (Death)
  Sender: FDA-Public Use
  Company Number: RU-GLAXOSMITHKLINE-B0416120A

PATIENT
  Age: 85 Year
  Sex: Female

DRUGS (5)
  1. FONDAPARINUX [Suspect]
     Indication: ACUTE MYOCARDIAL INFARCTION
     Dosage: 2.5MG PER DAY
     Route: 058
     Dates: start: 20050623
  2. ASPIRIN [Concomitant]
  3. PERINDOPRIL [Concomitant]
  4. PROPRANOLOL HYDROCHLORIDE [Concomitant]
  5. NITROGLYCERIN [Concomitant]

REACTIONS (3)
  - CARDIAC TAMPONADE [None]
  - MYOCARDIAL RUPTURE [None]
  - PERICARDIAL HAEMORRHAGE [None]
